FAERS Safety Report 9752571 (Version 1)
Quarter: 2013Q4

REPORT INFORMATION
  Report Type: Spontaneous
  Country: GB (occurrence: None)
  Receive Date: 20131211
  Receipt Date: 20131211
  Transmission Date: 20140711
  Serious: Yes (Other)
  Sender: FDA-Public Use
  Company Number: COL_14812_2013

PATIENT
  Sex: Female

DRUGS (2)
  1. DURAPHAT [Suspect]
     Indication: DENTAL CARIES
     Route: 048
     Dates: start: 20131106, end: 20131106
  2. DURAPHAT [Suspect]
     Indication: PROPHYLAXIS
     Route: 048
     Dates: start: 20131106, end: 20131106

REACTIONS (1)
  - Vomiting projectile [None]
